FAERS Safety Report 7300701-1 (Version None)
Quarter: 2011Q1

REPORT INFORMATION
  Report Type: 
  Country: None (occurrence: None)
  Receive Date: 20110218
  Receipt Date: 20101208
  Transmission Date: 20110831
  Serious: Yes (Hospitalization)
  Sender: FDA-Public Use
  Company Number: JP-AMGEN-JPNSP2010006217

PATIENT
  Age: 69 Year
  Sex: Female

DRUGS (4)
  1. PREDNISOLONE [Concomitant]
     Dosage: UNK
  2. METHOTREXATE [Concomitant]
     Dosage: 4 MG, QWK
  3. ENBREL [Suspect]
     Indication: RHEUMATOID ARTHRITIS
     Dosage: 25 MG, QD
     Route: 058
     Dates: start: 20070701, end: 20100701
  4. LOXOPROFEN [Concomitant]
     Dosage: UNK

REACTIONS (2)
  - LUPUS-LIKE SYNDROME [None]
  - HISTIOCYTOSIS HAEMATOPHAGIC [None]
